FAERS Safety Report 8790312 (Version 1)
Quarter: 2012Q4

REPORT INFORMATION
  Report Type: 
  Country: FR (occurrence: FR)
  Receive Date: 20120917
  Receipt Date: 20120917
  Transmission Date: 20130627
  Serious: Yes (Hospitalization)
  Sender: FDA-Public Use
  Company Number: FR-ASTRAZENECA-2012SE70384

PATIENT
  Sex: Male

DRUGS (4)
  1. DIPRIVAN [Suspect]
     Indication: ANAESTHESIA
     Dosage: Once/Single administration
     Route: 042
     Dates: start: 20120821, end: 20120821
  2. TRACRIUM [Suspect]
     Indication: ANAESTHESIA
     Dosage: Once/Single administration
     Dates: start: 20120821, end: 20120821
  3. HYPNOVEL [Suspect]
     Indication: ANAESTHESIA
     Dosage: Once/Single administration
     Dates: start: 20120821, end: 20120821
  4. SUFENTA [Suspect]
     Indication: ANAESTHESIA
     Dosage: Once/Single administration
     Dates: start: 20120821, end: 20120821

REACTIONS (1)
  - Anaphylactic shock [Recovered/Resolved]
